FAERS Safety Report 19922915 (Version 1)
Quarter: 2021Q4

REPORT INFORMATION
  Report Type: Spontaneous
  Country: US (occurrence: US)
  Receive Date: 20211004
  Receipt Date: 20211004
  Transmission Date: 20220303
  Serious: Yes (Hospitalization)
  Sender: FDA-Public Use
  Company Number: None

PATIENT
  Sex: Female

DRUGS (1)
  1. STELARA [Suspect]
     Active Substance: USTEKINUMAB
     Indication: Gastrointestinal inflammation
     Dosage: ?          OTHER FREQUENCY:EVERY 8 WEEKS;
     Route: 058
     Dates: start: 202106

REACTIONS (2)
  - Diarrhoea [None]
  - Renal impairment [None]
